FAERS Safety Report 7325328-7 (Version None)
Quarter: 2011Q1

REPORT INFORMATION
  Report Type: 
  Country: None (occurrence: None)
  Receive Date: 20110302
  Receipt Date: 20101206
  Transmission Date: 20110831
  Serious: Yes (Life-Threatening, Hospitalization, Other)
  Sender: FDA-Public Use
  Company Number: US-BAYER-201014053NA

PATIENT
  Sex: Female
  Weight: 62 kg

DRUGS (20)
  1. CLONIDINE [Concomitant]
  2. ZYVOX [Concomitant]
  3. IBUPROFEN [Concomitant]
     Dosage: USED VERY RARELY
  4. YASMIN [Suspect]
     Indication: CONTRACEPTION
     Route: 048
     Dates: start: 20070101, end: 20070601
  5. HUMULIN N [Concomitant]
  6. PREDNISONE [Concomitant]
  7. BENICAR [Concomitant]
     Dosage: 40 MG (DAILY DOSE), ,
  8. LASIX [Concomitant]
  9. REGLAN [Concomitant]
     Indication: RENAL FAILURE
  10. PROTONIX [Concomitant]
  11. ATENOLOL [Concomitant]
     Dosage: 25 MG IN THE MORNING AND 25 MG AT BEDTIME
  12. NORVASC [Concomitant]
  13. YAZ [Suspect]
     Indication: ACNE
     Route: 048
     Dates: start: 20050101, end: 20060101
  14. YAZ [Suspect]
     Indication: CONTRACEPTION
  15. LANTUS [Concomitant]
     Dosage: 18 UNITS
  16. YASMIN [Suspect]
     Indication: ACNE
     Dosage: UNK
     Dates: start: 20050311, end: 20060207
  17. HUMULIN R [Concomitant]
  18. NOVOLOG [Concomitant]
     Dosage: SLIDING SCALE
  19. ALDARA [Concomitant]
  20. VANCOMYCIN [Concomitant]

REACTIONS (10)
  - ANAEMIA [None]
  - PROTEINURIA [None]
  - CONSTIPATION [None]
  - DIABETIC NEPHROPATHY [None]
  - FATIGUE [None]
  - RENAL FAILURE [None]
  - KETOACIDOSIS [None]
  - NAUSEA [None]
  - VOMITING [None]
  - GENERALISED OEDEMA [None]
